FAERS Safety Report 11168937 (Version 1)
Quarter: 2015Q2

REPORT INFORMATION
  Report Type: Report from Study
  Country: SE (occurrence: SE)
  Receive Date: 20150605
  Receipt Date: 20150605
  Transmission Date: 20150821
  Serious: Yes (Hospitalization)
  Sender: FDA-Public Use
  Company Number: PHHO2011SE07264

PATIENT
  Age: 78 Year
  Sex: Female
  Weight: 78.96 kg

DRUGS (3)
  1. BLINDED NO TREATMENT RECEIVED [Suspect]
     Active Substance: UNSPECIFIED INGREDIENT
     Dosage: CODE NOT BROKEN
     Route: 048
     Dates: start: 20100428
  2. BLINDED ENALAPRIL [Suspect]
     Active Substance: ENALAPRIL
     Dosage: CODE NOT BROKEN
     Route: 048
     Dates: start: 20100428
  3. BLINDED ALISKIREN [Suspect]
     Active Substance: ALISKIREN
     Dosage: CODE NOT BROKEN
     Route: 048
     Dates: start: 20100428

REACTIONS (2)
  - Dyspnoea [Recovered/Resolved]
  - Chest pain [Recovered/Resolved]

NARRATIVE: CASE EVENT DATE: 20110401
